FAERS Safety Report 8110840-3 (Version None)
Quarter: 2012Q1

REPORT INFORMATION
  Report Type: 
  Country: None (occurrence: None)
  Receive Date: 20120125
  Receipt Date: 20120110
  Transmission Date: 20120608
  Serious: Yes (Hospitalization)
  Sender: FDA-Public Use
  Company Number: 2012030789

PATIENT
  Sex: Female
  Weight: 86.637 kg

DRUGS (17)
  1. OXYGEN (OXYGEN) [Concomitant]
  2. VENLAFAXINE [Concomitant]
  3. IMITREX [Concomitant]
  4. METFORMIN HCL [Concomitant]
  5. FOLIC ACID [Concomitant]
  6. ATORVASTATIN CALCIUM [Concomitant]
  7. GLYBURIDE [Concomitant]
  8. HIZENTRA [Suspect]
     Indication: BLOOD IMMUNOGLOBULIN G DECREASED
     Dates: start: 20100901
  9. FUROSEMIDE [Concomitant]
  10. LEXAPRIL (ESCITALOPRAM) [Concomitant]
  11. POTASSIUM CHLORIDE [Concomitant]
  12. METOPROLOL TARTRATE [Concomitant]
  13. ADVAIR DISKUS 100/50 [Concomitant]
  14. SPIRIVA [Concomitant]
  15. PREDNISONE TAB [Concomitant]
  16. PREVACID [Concomitant]
  17. NORTRIPTYLINE HCL [Concomitant]

REACTIONS (5)
  - TOOTHACHE [None]
  - CONFUSIONAL STATE [None]
  - MANIA [None]
  - MIGRAINE [None]
  - DRY MOUTH [None]
